FAERS Safety Report 9895733 (Version 1)
Quarter: 2014Q1

REPORT INFORMATION
  Report Type: Report from Study
  Country: US (occurrence: US)
  Receive Date: 20140213
  Receipt Date: 20140213
  Transmission Date: 20141002
  Serious: Yes (Other)
  Sender: FDA-Public Use
  Company Number: US-ABBVIE-14P-163-1198056-00

PATIENT
  Age: 67 Year
  Sex: Female
  Weight: 74.46 kg

DRUGS (7)
  1. HUMIRA [Suspect]
     Indication: RHEUMATOID ARTHRITIS
  2. ENBREL [Suspect]
     Indication: RHEUMATOID ARTHRITIS
  3. ENBREL [Suspect]
     Indication: PSORIATIC ARTHROPATHY
  4. LEVOTHYROXINE [Concomitant]
     Indication: THYROID DISORDER
  5. ATENOLOL [Concomitant]
     Indication: HYPERTENSION
  6. LISINOPRIL [Concomitant]
     Indication: HYPERTENSION
  7. VITAMINS [Concomitant]
     Indication: VITAMIN SUPPLEMENTATION

REACTIONS (14)
  - Coronary artery occlusion [Recovered/Resolved]
  - Cardiac murmur [Unknown]
  - Aortic valve incompetence [Recovered/Resolved]
  - Tendon rupture [Recovered/Resolved]
  - Diabetes mellitus [Not Recovered/Not Resolved]
  - Herpes zoster [Recovered/Resolved]
  - Herpes zoster [Recovered/Resolved]
  - Neuralgia [Not Recovered/Not Resolved]
  - Sinus congestion [Unknown]
  - Oral candidiasis [Recovered/Resolved]
  - Psoriatic arthropathy [Not Recovered/Not Resolved]
  - Joint stiffness [Not Recovered/Not Resolved]
  - Visual impairment [Unknown]
  - Ophthalmic herpes zoster [Unknown]
